FAERS Safety Report 4731694-9 (Version None)
Quarter: 2005Q3

REPORT INFORMATION
  Report Type: 
  Country: None (occurrence: None)
  Receive Date: 20050725
  Receipt Date: 20041019
  Transmission Date: 20060218
  Serious: Yes (Disabling)
  Sender: FDA-Public Use
  Company Number: WAES 0306USA00872

PATIENT
  Age: 50 Year
  Sex: Female

DRUGS (6)
  1. VIOXX [Suspect]
     Dosage: 25 MG/BID/PO
     Route: 048
  2. OXYCONTIN [Concomitant]
  3. PERCOCET [Concomitant]
  4. SOMA [Concomitant]
  5. XANAX [Concomitant]
  6. NITROGLYCERIN [Concomitant]

REACTIONS (29)
  - ABDOMINAL PAIN [None]
  - ADVERSE EVENT [None]
  - ANXIETY [None]
  - ARTHRALGIA [None]
  - BACK INJURY [None]
  - BACK PAIN [None]
  - BOWEL MOVEMENT IRREGULARITY [None]
  - CHEST PAIN [None]
  - CONSTIPATION [None]
  - DEPRESSION [None]
  - DEPRESSIVE SYMPTOM [None]
  - DYSPEPSIA [None]
  - FACET JOINT SYNDROME [None]
  - GASTROINTESTINAL DISORDER [None]
  - HEADACHE [None]
  - HEPATIC STEATOSIS [None]
  - HYPERTENSION [None]
  - INSOMNIA [None]
  - INTERVERTEBRAL DISC PROTRUSION [None]
  - MYOFASCIAL PAIN SYNDROME [None]
  - NAUSEA [None]
  - NECK PAIN [None]
  - PAIN [None]
  - PNEUMONITIS [None]
  - ROAD TRAFFIC ACCIDENT [None]
  - SEXUAL DYSFUNCTION [None]
  - STOMACH DISCOMFORT [None]
  - TREMOR [None]
  - VOMITING [None]
